FAERS Safety Report 5150731-3 (Version None)
Quarter: 2006Q4

REPORT INFORMATION
  Report Type: 
  Country: None (occurrence: None)
  Receive Date: 20061108
  Receipt Date: 19941109
  Transmission Date: 20070319
  Serious: Yes (Other)
  Sender: FDA-Public Use
  Company Number: 2006121781

PATIENT
  Age: 71 Year
  Sex: Male

DRUGS (2)
  1. IRINOTECAN HCL [Suspect]
     Indication: COLON CANCER
     Dosage: 600 MG/M*2 (EVERY 3 WEEKS), INTRAVENOUS
     Route: 042
     Dates: start: 19930514, end: 19930514
  2. BUPRENORPHINE HCL [Concomitant]

REACTIONS (1)
  - NO ADVERSE DRUG EFFECT [None]
